FAERS Safety Report 8791138 (Version 1)
Quarter: 2012Q4

REPORT INFORMATION
  Report Type: Spontaneous
  Country: US (occurrence: None)
  Receive Date: 20120912
  Receipt Date: 20120912
  Transmission Date: 20130627
  Serious: Yes (Hospitalization)
  Sender: FDA-Public Use
  Company Number: AUR-APL-2012-03891

PATIENT
  Age: 59 Year
  Sex: Male
  Weight: 80 kg

DRUGS (1)
  1. RAMIPRIL [Suspect]
     Indication: HYPERTENSION ARTERIAL
     Route: 048
     Dates: start: 20120425

REACTIONS (1)
  - Angioedema [None]
